FAERS Safety Report 5367195-7 (Version None)
Quarter: 2007Q2

REPORT INFORMATION
  Report Type: 
  Country: None (occurrence: None)
  Receive Date: 20070620
  Receipt Date: 20070620
  Transmission Date: 20071010
  Serious: Yes (Hospitalization)
  Sender: FDA-Public Use
  Company Number: None

PATIENT
  Age: 59 Year
  Sex: Male

DRUGS (1)
  1. PIPERACILLIN AND TAZOBACTAM [Suspect]
     Indication: CELLULITIS
     Dosage: 3.375GM QID IV
     Route: 042
     Dates: start: 20070615, end: 20070615

REACTIONS (3)
  - DYSPNOEA [None]
  - FLUSHING [None]
  - HYPOTENSION [None]
